FAERS Safety Report 6721952-0 (Version None)
Quarter: 2010Q2

REPORT INFORMATION
  Report Type: 
  Country: None (occurrence: None)
  Receive Date: 20100512
  Receipt Date: 20100503
  Transmission Date: 20101027
  Serious: Yes (Other)
  Sender: FDA-Public Use
  Company Number: A0848682A

PATIENT
  Age: 65 Year
  Sex: Female

DRUGS (12)
  1. ADVAIR DISKUS 100/50 [Suspect]
     Indication: ASTHMA
     Dosage: 1PUFF TWICE PER DAY
     Route: 055
     Dates: start: 19980101
  2. SINGULAIR [Concomitant]
  3. OMNARIS [Concomitant]
  4. NASAL SPRAY [Concomitant]
  5. POTASSIUM [Concomitant]
  6. VITAMIN D [Concomitant]
  7. EVISTA [Concomitant]
  8. FORTEO [Concomitant]
  9. BENICAR [Concomitant]
  10. NIACIN [Concomitant]
  11. ZOCOR [Concomitant]
  12. CALCIUM [Concomitant]

REACTIONS (2)
  - GLAUCOMA [None]
  - POLYPOIDAL CHOROIDAL VASCULOPATHY [None]
